FAERS Safety Report 25493150 (Version 1)
Quarter: 2025Q2

REPORT INFORMATION
  Report Type: Spontaneous
  Country: JP (occurrence: JP)
  Receive Date: 20250630
  Receipt Date: 20250630
  Transmission Date: 20250717
  Serious: Yes (Hospitalization)
  Sender: MYLAN
  Company Number: JP-MYLANLABS-2025M1053806

PATIENT
  Age: 68 Year
  Sex: Male

DRUGS (2)
  1. GABAPENTIN [Suspect]
     Active Substance: GABAPENTIN
     Indication: Product used for unknown indication
  2. MOVICOL [Concomitant]
     Active Substance: POLYETHYLENE GLYCOL 3350\POTASSIUM CHLORIDE\SODIUM BICARBONATE\SODIUM CHLORIDE

REACTIONS (1)
  - Unevaluable event [Unknown]
